FAERS Safety Report 9113884 (Version 1)
Quarter: 2013Q1

REPORT INFORMATION
  Report Type: Report from Study
  Country: US (occurrence: US)
  Receive Date: 20130129
  Receipt Date: 20130129
  Transmission Date: 20140127
  Serious: No
  Sender: FDA-Public Use
  Company Number: US-ABBOTT-12P-163-0939463-00

PATIENT
  Age: 47 Year
  Sex: Male

DRUGS (16)
  1. HUMIRA 40 MG/0.8 ML PEN [Suspect]
     Indication: CROHN^S DISEASE
     Dosage: LOADING DOSE
     Dates: start: 20120510
  2. INSULIN [Concomitant]
     Indication: DIABETES MELLITUS
  3. NEURONTIN [Concomitant]
     Indication: NERVE INJURY
  4. VENTOLIN INHALER [Concomitant]
     Indication: ASTHMA
  5. SIMVASTATIN [Concomitant]
     Indication: BLOOD CHOLESTEROL INCREASED
  6. METFORMIN [Concomitant]
     Indication: DIABETES MELLITUS
  7. VICTOZA [Concomitant]
     Indication: DIABETES MELLITUS
  8. AZATHIOPRINE [Concomitant]
     Indication: CROHN^S DISEASE
  9. LISINOPRIL [Concomitant]
     Indication: HYPERTENSION
  10. GLIPIZIDE [Concomitant]
     Indication: DIABETES MELLITUS
  11. SINGULAIR [Concomitant]
     Indication: HYPERSENSITIVITY
  12. DEXILANT [Concomitant]
     Indication: GASTROOESOPHAGEAL REFLUX DISEASE
  13. CITALOPRAM [Concomitant]
     Indication: DEPRESSION
  14. HYDROCHLOROTHIAZIDE [Concomitant]
     Indication: HYPERTENSION
  15. TERAZOSIN [Concomitant]
     Indication: PROSTATOMEGALY
  16. NAPROSYN [Concomitant]
     Indication: ARTHROPOD STING
     Dosage: AS NEEDED FOR BEE STINGS

REACTIONS (1)
  - Injection site pain [Recovered/Resolved]
